FAERS Safety Report 12082396 (Version 2)
Quarter: 2016Q1

REPORT INFORMATION
  Report Type: Spontaneous
  Country: FR (occurrence: FR)
  Receive Date: 20160217
  Receipt Date: 20160302
  Transmission Date: 20160526
  Serious: Yes (Hospitalization)
  Sender: FDA-Public Use
  Company Number: FR-PFIZER INC-2016091150

PATIENT
  Age: 82 Year
  Sex: Male

DRUGS (5)
  1. BISOPROLOL TEVA [Suspect]
     Active Substance: BISOPROLOL
     Indication: CHEST PAIN
  2. RAMIPRIL. [Suspect]
     Active Substance: RAMIPRIL
     Indication: SYSTOLIC DYSFUNCTION
     Dosage: 2.5 MG, DAILY
     Route: 048
     Dates: start: 20150414
  3. BISOPROLOL TEVA [Suspect]
     Active Substance: BISOPROLOL
     Indication: PALPITATIONS
     Dosage: 2.5 MG, DAILY
     Route: 048
     Dates: start: 20150414
  4. CRESTOR [Suspect]
     Active Substance: ROSUVASTATIN CALCIUM
     Indication: HYPERCHOLESTEROLAEMIA
     Dosage: 5 MG, DAILY
     Route: 048
     Dates: start: 2010
  5. PREVISCAN [Suspect]
     Active Substance: FLUINDIONE
     Indication: PULMONARY EMBOLISM
     Dosage: 0.75 DF, DAILY
     Route: 048
     Dates: start: 20111025

REACTIONS (2)
  - Chest pain [Not Recovered/Not Resolved]
  - Pericarditis [Unknown]

NARRATIVE: CASE EVENT DATE: 20150621
